FAERS Safety Report 7680653-5 (Version None)
Quarter: 2011Q3

REPORT INFORMATION
  Report Type: 
  Country: None (occurrence: None)
  Receive Date: 20110812
  Receipt Date: 20110808
  Transmission Date: 20111222
  Serious: Yes (Other)
  Sender: FDA-Public Use
  Company Number: US-SANOFI-AVENTIS-2011SA051122

PATIENT
  Sex: Female

DRUGS (2)
  1. ALLEGRA [Suspect]
     Route: 048
     Dates: start: 19960101, end: 20110301
  2. ANTIHYPERTENSIVES [Suspect]
     Indication: BLOOD PRESSURE

REACTIONS (4)
  - BLOOD PRESSURE ABNORMAL [None]
  - LOSS OF CONSCIOUSNESS [None]
  - DIZZINESS [None]
  - FALL [None]
